FAERS Safety Report 8276692-6 (Version None)
Quarter: 2012Q2

REPORT INFORMATION
  Report Type: 
  Country: None (occurrence: None)
  Receive Date: 20120412
  Receipt Date: 20120412
  Transmission Date: 20120825
  Serious: Yes (Hospitalization)
  Sender: FDA-Public Use
  Company Number: None

PATIENT
  Age: 78 Year
  Sex: Female
  Weight: 35 kg

DRUGS (7)
  1. CARVEDILOL [Concomitant]
  2. OXYCODONE HCL [Concomitant]
  3. CITALOPRAM HYDROBROMIDE [Concomitant]
     Route: 048
  4. LISINOPRIL [Concomitant]
     Route: 048
  5. FUROSEMIDE [Concomitant]
     Route: 048
  6. MORPHINE SULFATE [Concomitant]
     Route: 048
  7. DIGOXIN [Suspect]
     Indication: CARDIAC FAILURE CONGESTIVE
     Dosage: 125 MCG
     Route: 048

REACTIONS (11)
  - DIZZINESS [None]
  - ATRIOVENTRICULAR BLOCK FIRST DEGREE [None]
  - CARDIOACTIVE DRUG LEVEL ABOVE THERAPEUTIC [None]
  - ASTHENIA [None]
  - FALL [None]
  - URINARY TRACT INFECTION [None]
  - CONFUSIONAL STATE [None]
  - ATRIOVENTRICULAR BLOCK SECOND DEGREE [None]
  - DECREASED APPETITE [None]
  - RENAL FAILURE ACUTE [None]
  - LETHARGY [None]
